FAERS Safety Report 9292472 (Version 1)
Quarter: 2013Q2

REPORT INFORMATION
  Report Type: Spontaneous
  Country: IT (occurrence: IT)
  Receive Date: 20130516
  Receipt Date: 20130516
  Transmission Date: 20140414
  Serious: Yes (Hospitalization)
  Sender: FDA-Public Use
  Company Number: IT-ROCHE-1223467

PATIENT
  Age: 89 Year
  Sex: Female

DRUGS (2)
  1. CEFTRIAXONE [Suspect]
     Indication: BRONCHITIS
     Route: 030
     Dates: start: 20121009, end: 20121015
  2. COUMADIN [Suspect]
     Indication: ATRIAL FIBRILLATION
     Route: 048
     Dates: start: 20121015, end: 20121015

REACTIONS (2)
  - Nausea [Recovered/Resolved]
  - Vertigo [Recovered/Resolved]
